FAERS Safety Report 23405839 (Version 1)
Quarter: 2024Q1

REPORT INFORMATION
  Report Type: Spontaneous
  Country: US (occurrence: US)
  Receive Date: 20240116
  Receipt Date: 20240116
  Transmission Date: 20240409
  Serious: Yes (Death, Other)
  Sender: FDA-Public Use
  Company Number: US-AMGEN-USASP2024007205

PATIENT
  Age: 58 Year
  Sex: Female

DRUGS (1)
  1. BEVACIZUMAB [Suspect]
     Active Substance: BEVACIZUMAB
     Indication: Glioblastoma
     Dosage: UNK
     Route: 065

REACTIONS (8)
  - Gliosarcoma [Fatal]
  - Malignant pleural effusion [Unknown]
  - Metastases to lung [Unknown]
  - Metastases to spine [Unknown]
  - Metastases to meninges [Unknown]
  - Metastases to heart [Unknown]
  - Metastases to liver [Unknown]
  - Metastases to bone [Unknown]
